FAERS Safety Report 4724973-2 (Version None)
Quarter: 2005Q3

REPORT INFORMATION
  Report Type: 
  Country: None (occurrence: None)
  Receive Date: 20050726
  Receipt Date: 20050719
  Transmission Date: 20060218
  Serious: Yes (Hospitalization)
  Sender: FDA-Public Use
  Company Number: FR-ROCHE-411265

PATIENT
  Age: 73 Year
  Sex: Female

DRUGS (11)
  1. ROCEPHIN [Suspect]
     Indication: DRUG USE FOR UNKNOWN INDICATION
     Route: 042
     Dates: start: 20050608
  2. CIFLOX [Suspect]
     Indication: DRUG USE FOR UNKNOWN INDICATION
     Route: 048
  3. CAELYX [Suspect]
     Indication: DRUG USE FOR UNKNOWN INDICATION
     Route: 065
     Dates: start: 20050601, end: 20050601
  4. TRIFLUCAN [Suspect]
     Indication: DRUG USE FOR UNKNOWN INDICATION
     Route: 042
     Dates: start: 20050611, end: 20050612
  5. AUGMENTIN [Suspect]
     Indication: DRUG USE FOR UNKNOWN INDICATION
     Route: 048
     Dates: end: 20050608
  6. ROVAMYCINE [Suspect]
     Indication: DRUG USE FOR UNKNOWN INDICATION
     Route: 065
     Dates: end: 20050610
  7. LASIX [Concomitant]
     Dosage: REPORTED AS LASLIX.
  8. LEXOMIL [Concomitant]
  9. TIORFAN [Concomitant]
  10. SMECTA [Concomitant]
  11. LOVENOX [Concomitant]

REACTIONS (2)
  - ERYTHEMA [None]
  - SKIN BURNING SENSATION [None]
